FAERS Safety Report 6495261-1 (Version None)
Quarter: 2009Q4

REPORT INFORMATION
  Report Type: 
  Country: None (occurrence: None)
  Receive Date: 20091214
  Receipt Date: 20091204
  Transmission Date: 20100525
  Serious: Yes (Life-Threatening, Hospitalization, Other)
  Sender: FDA-Public Use
  Company Number: US-PFIZER INC-2009289986

PATIENT
  Sex: Male
  Weight: 81 kg

DRUGS (3)
  1. CHANTIX [Suspect]
     Indication: SMOKING CESSATION THERAPY
     Dosage: 0.5 MG, 1X/DAY
     Route: 048
     Dates: start: 20080201, end: 20080101
  2. NAPROXEN [Concomitant]
  3. ZOLOFT [Concomitant]

REACTIONS (5)
  - ANXIETY [None]
  - DEPRESSION [None]
  - MEMORY IMPAIRMENT [None]
  - PARANOIA [None]
  - SUICIDE ATTEMPT [None]
